FAERS Safety Report 18511996 (Version 1)
Quarter: 2020Q4

REPORT INFORMATION
  Report Type: Spontaneous
  Country: US (occurrence: US)
  Receive Date: 20201117
  Receipt Date: 20201117
  Transmission Date: 20210114
  Serious: Yes (Other)
  Sender: FDA-Public Use
  Company Number: US-PURDUE-USA-2020-0164934

PATIENT
  Sex: Male

DRUGS (3)
  1. OXYCODONE HYDROCHLORIDE (SIMILAR TO NDA 22-272) [Suspect]
     Active Substance: OXYCODONE HYDROCHLORIDE
     Indication: PRODUCT USED FOR UNKNOWN INDICATION
     Dosage: 30 MG, UNK
     Route: 048
     Dates: start: 20020521
  2. OXYCONTIN [Suspect]
     Active Substance: OXYCODONE HYDROCHLORIDE
     Indication: PRODUCT USED FOR UNKNOWN INDICATION
     Route: 048
  3. XANAX [Suspect]
     Active Substance: ALPRAZOLAM
     Indication: PRODUCT USED FOR UNKNOWN INDICATION
     Dosage: 1 MG, UNK
     Route: 065
     Dates: start: 20020521

REACTIONS (13)
  - Drug withdrawal syndrome [Unknown]
  - Back pain [Unknown]
  - Pain [Unknown]
  - Tremor [Unknown]
  - Seizure [Unknown]
  - Carpal tunnel syndrome [Unknown]
  - Migraine [Unknown]
  - Illness [Unknown]
  - Confusional state [Unknown]
  - Neuropathy peripheral [Unknown]
  - Hyperhidrosis [Unknown]
  - Weight fluctuation [Unknown]
  - Drug dependence [Unknown]
